FAERS Safety Report 8928988 (Version 1)
Quarter: 2012Q4

REPORT INFORMATION
  Report Type: 
  Country: FI (occurrence: FI)
  Receive Date: 20121127
  Receipt Date: 20121127
  Transmission Date: 20130627
  Serious: Yes (Other)
  Sender: FDA-Public Use
  Company Number: FI-AMGEN-FINSP2012076022

PATIENT
  Age: 62 Year
  Sex: Male

DRUGS (6)
  1. ENBREL [Suspect]
     Indication: PSORIATIC ARTHROPATHY
     Dosage: 50 mg, weekly
     Route: 058
     Dates: start: 200602, end: 201203
  2. ENBREL [Suspect]
     Indication: ANKYLOSING SPONDYLITIS
  3. TREXAN                             /00113801/ [Concomitant]
     Indication: PSORIATIC ARTHROPATHY
     Dosage: 20 mg, weekly
     Route: 048
     Dates: start: 2005
  4. TREXAN                             /00113801/ [Concomitant]
     Indication: ANKYLOSING SPONDYLITIS
  5. SALAZOPYRIN EN [Concomitant]
     Indication: PSORIATIC ARTHROPATHY
     Dosage: 3 grams daily
     Route: 048
     Dates: start: 2000
  6. SALAZOPYRIN EN [Concomitant]
     Indication: ANKYLOSING SPONDYLITIS

REACTIONS (1)
  - Bronchiectasis [Recovered/Resolved with Sequelae]
